FAERS Safety Report 5029947-2 (Version None)
Quarter: 2006Q2

REPORT INFORMATION
  Report Type: 
  Country: None (occurrence: None)
  Receive Date: 20060614
  Receipt Date: 20060531
  Transmission Date: 20061013
  Serious: Yes (Other)
  Sender: FDA-Public Use
  Company Number: 2006PV014807

PATIENT
  Age: 44 Year
  Sex: Female

DRUGS (1)
  1. BYETTA [Suspect]
     Indication: DIABETES MELLITUS NON-INSULIN-DEPENDENT
     Dosage: 5 MCG; SC; SEE IMAGE
     Route: 058

REACTIONS (4)
  - HEADACHE [None]
  - ISCHAEMIC NEUROPATHY [None]
  - MONONEUROPATHY [None]
  - VISION BLURRED [None]
